FAERS Safety Report 15784281 (Version 1)
Quarter: 2019Q1

REPORT INFORMATION
  Report Type: Spontaneous
  Country: DE (occurrence: DE)
  Receive Date: 20190103
  Receipt Date: 20190103
  Transmission Date: 20190417
  Serious: Yes (Hospitalization, Other)
  Sender: FDA-Public Use
  Company Number: DE-TEVA-2018-DE-994007

PATIENT
  Age: 54 Year
  Sex: Male

DRUGS (8)
  1. ADRIAMYCIN [Interacting]
     Active Substance: DOXORUBICIN HYDROCHLORIDE
     Indication: NON-HODGKIN^S LYMPHOMA
     Route: 065
  2. SANDIMMUN [Interacting]
     Active Substance: CYCLOSPORINE
     Indication: HEART TRANSPLANT
     Dosage: 140 MILLIGRAM DAILY; 70 MG, BID
     Dates: start: 1993
  3. ETOPOSIDE. [Interacting]
     Active Substance: ETOPOSIDE
     Indication: NON-HODGKIN^S LYMPHOMA
     Route: 065
  4. ZYLORIC ^FAES^ [Concomitant]
     Active Substance: ALLOPURINOL
     Route: 065
  5. VINCRISTINE [Suspect]
     Active Substance: VINCRISTINE
     Indication: NON-HODGKIN^S LYMPHOMA
     Route: 065
  6. CYCLOPHOSPHAMIDE. [Interacting]
     Active Substance: CYCLOPHOSPHAMIDE
     Indication: NON-HODGKIN^S LYMPHOMA
     Route: 065
  7. ZOCOR ^DIECKMANN^ [Concomitant]
     Route: 065
  8. CELLCEPT [Concomitant]
     Active Substance: MYCOPHENOLATE MOFETIL\MYCOPHENOLATE MOFETIL HYDROCHLORIDE
     Route: 065

REACTIONS (3)
  - Non-Hodgkin^s lymphoma [Unknown]
  - Drug interaction [Unknown]
  - Abdominal pain [Unknown]
